FAERS Safety Report 5029742-4 (Version None)
Quarter: 2006Q2

REPORT INFORMATION
  Report Type: 
  Country: None (occurrence: None)
  Receive Date: 20060620
  Receipt Date: 20060608
  Transmission Date: 20061013
  Serious: Yes (Hospitalization)
  Sender: FDA-Public Use
  Company Number: FR-JNJFOC-20060505371

PATIENT
  Age: 34 Year
  Sex: Female

DRUGS (8)
  1. REMICADE [Suspect]
     Indication: RHEUMATOID ARTHRITIS
     Route: 042
  2. LAMALINE [Concomitant]
     Route: 048
  3. LAMALINE [Concomitant]
     Route: 048
  4. LAMALINE [Concomitant]
     Route: 048
  5. LAMALINE [Concomitant]
     Indication: RHEUMATOID ARTHRITIS
     Route: 048
  6. VARNOLINE [Concomitant]
     Route: 048
  7. VARNOLINE [Concomitant]
     Indication: CONTRACEPTION
     Route: 048
  8. METHOTREXATE [Concomitant]
     Indication: RHEUMATOID ARTHRITIS
     Route: 048

REACTIONS (1)
  - CEREBELLAR HAEMORRHAGE [None]
